FAERS Safety Report 16531265 (Version 1)
Quarter: 2019Q3

REPORT INFORMATION
  Report Type: Spontaneous
  Country: US (occurrence: US)
  Receive Date: 20190705
  Receipt Date: 20190705
  Transmission Date: 20191004
  Serious: Yes (Other)
  Sender: FDA-Public Use
  Company Number: US-PFIZER INC-2019285761

PATIENT
  Age: 67 Year
  Sex: Female

DRUGS (1)
  1. PREMARIN [Suspect]
     Active Substance: ESTROGENS, CONJUGATED
     Indication: HOT FLUSH
     Dosage: UNK UNK, 1X/DAY
     Route: 048
     Dates: start: 1999

REACTIONS (2)
  - Cerebrovascular accident [Recovered/Resolved with Sequelae]
  - Malignant mesenteric neoplasm [Unknown]

NARRATIVE: CASE EVENT DATE: 2014
